FAERS Safety Report 17346111 (Version 2)
Quarter: 2020Q1

REPORT INFORMATION
  Report Type: Spontaneous
  Country: IL (occurrence: IL)
  Receive Date: 20200129
  Receipt Date: 20200228
  Transmission Date: 20200409
  Serious: Yes (Death, Hospitalization)
  Sender: FDA-Public Use
  Company Number: IL-EXELIXIS-CABO-19026538

PATIENT
  Age: 68 Year
  Sex: Female

DRUGS (6)
  1. PREDNISOLONE. [Concomitant]
     Active Substance: PREDNISOLONE
  2. VASCACE [Concomitant]
     Active Substance: CILAZAPRIL ANHYDROUS
  3. CARDILOC [Concomitant]
     Active Substance: BISOPROLOL FUMARATE
  4. CABOMETYX [Suspect]
     Active Substance: CABOZANTINIB S-MALATE
     Indication: METASTATIC RENAL CELL CARCINOMA
     Dosage: 40 MG, QD
     Dates: start: 201803, end: 202001
  5. ELIQUIS [Concomitant]
     Active Substance: APIXABAN
  6. NEXIUM [Concomitant]
     Active Substance: ESOMEPRAZOLE MAGNESIUM

REACTIONS (3)
  - Pneumonia influenzal [Fatal]
  - Sepsis [Fatal]
  - Chronic lymphocytic leukaemia recurrent [Unknown]
